FAERS Safety Report 8063524-4 (Version None)
Quarter: 2012Q1

REPORT INFORMATION
  Report Type: 
  Country: None (occurrence: None)
  Receive Date: 20120123
  Receipt Date: 20120111
  Transmission Date: 20120608
  Serious: Yes (Other)
  Sender: FDA-Public Use
  Company Number: TR-ELI_LILLY_AND_COMPANY-TR201201003447

PATIENT
  Sex: Female
  Weight: 102 kg

DRUGS (3)
  1. BYETTA [Suspect]
     Indication: TYPE 2 DIABETES MELLITUS
     Dosage: 5 UG, BID
     Route: 058
     Dates: start: 20111212
  2. GLUCOPHAGE [Concomitant]
     Dosage: 1 G, BID
     Route: 048
  3. GLUCOPHAGE [Concomitant]
     Indication: TYPE 2 DIABETES MELLITUS
     Dosage: 350 MG, BID
     Route: 048
     Dates: start: 20080101

REACTIONS (1)
  - EPISTAXIS [None]
